FAERS Safety Report 6226808-8 (Version None)
Quarter: 2009Q2

REPORT INFORMATION
  Report Type: 
  Country: None (occurrence: None)
  Receive Date: 20090612
  Receipt Date: 20090521
  Transmission Date: 20091009
  Serious: No
  Sender: FDA-Public Use
  Company Number: US-ABBOTT-09P-163-0575460-00

PATIENT
  Sex: Male
  Weight: 118.95 kg

DRUGS (5)
  1. HUMIRA [Suspect]
     Indication: RHEUMATOID ARTHRITIS
     Route: 058
     Dates: start: 20090105, end: 20090201
  2. HUMIRA [Suspect]
     Route: 058
     Dates: end: 20090401
  3. HUMIRA [Suspect]
     Route: 058
     Dates: start: 20090401
  4. PREDNISONE [Concomitant]
     Indication: RHEUMATOID ARTHRITIS
     Dosage: BEING WEANED OFF, LAST DATE 28 MAY 2009
     Dates: start: 20081224
  5. NICOTINE [Concomitant]
     Indication: SMOKING CESSATION THERAPY
     Dosage: PATCH
     Route: 062
     Dates: start: 20090501

REACTIONS (6)
  - ARTHROPATHY [None]
  - FALL [None]
  - FATIGUE [None]
  - MENISCUS LESION [None]
  - OXYGEN SATURATION DECREASED [None]
  - PNEUMONIA [None]
